FAERS Safety Report 17909119 (Version 1)
Quarter: 2020Q2

REPORT INFORMATION
  Report Type: Other
  Country: ES (occurrence: ES)
  Receive Date: 20200618
  Receipt Date: 20200618
  Transmission Date: 20200714
  Serious: Yes (Hospitalization, Other)
  Sender: FDA-Public Use
  Company Number: ES-CELLTRION INC.-2020ES023301

PATIENT

DRUGS (3)
  1. RITUXIMAB (UNKNOWN) [Suspect]
     Active Substance: RITUXIMAB
     Indication: PRODUCT USED FOR UNKNOWN INDICATION
     Route: 065
  2. VENETOCLAX. [Suspect]
     Active Substance: VENETOCLAX
     Indication: CHRONIC LYMPHOCYTIC LEUKAEMIA
     Dosage: 100 MG
     Route: 048
     Dates: start: 20200527, end: 20200527
  3. VENETOCLAX. [Suspect]
     Active Substance: VENETOCLAX
     Dosage: 200 MG
     Route: 048
     Dates: start: 202006, end: 202006

REACTIONS (7)
  - Arterial stenosis [Not Recovered/Not Resolved]
  - Anaemia [Unknown]
  - Metabolic acidosis [Recovered/Resolved]
  - Cardiac failure [Unknown]
  - Cardiac arrest [Unknown]
  - Lymphadenopathy [Unknown]
  - Blood potassium increased [Recovered/Resolved]

NARRATIVE: CASE EVENT DATE: 2020
